FAERS Safety Report 8548066-1 (Version None)
Quarter: 2012Q3

REPORT INFORMATION
  Report Type: 
  Country: None (occurrence: None)
  Receive Date: 20120730
  Receipt Date: 20120717
  Transmission Date: 20120928
  Serious: Yes (Hospitalization)
  Sender: FDA-Public Use
  Company Number: US-ROCHE-GNE311654

PATIENT
  Sex: Female
  Weight: 72.6 kg

DRUGS (22)
  1. ASCORBIC ACID [Concomitant]
  2. TRAVATAN [Concomitant]
  3. ACCOLATE [Concomitant]
  4. LEVOTHYROXINE SODIUM [Concomitant]
  5. FUROSEMIDE [Concomitant]
  6. PLAVIX [Concomitant]
     Indication: PRODUCT USED FOR UNKNOWN INDICATION
  7. ASPIRIN [Concomitant]
     Indication: PRODUCT USED FOR UNKNOWN INDICATION
  8. ALTACE [Concomitant]
  9. LEXAPRO [Concomitant]
  10. TYLENOL [Concomitant]
  11. AMBIEN [Concomitant]
  12. IMODIUM [Concomitant]
  13. RANIBIZUMAB [Suspect]
     Indication: AGE-RELATED MACULAR DEGENERATION
     Route: 050
     Dates: start: 20100602, end: 20111019
  14. ADVAIR DISKUS 100/50 [Concomitant]
  15. ASPIRIN [Concomitant]
  16. PRAVASTATIN [Concomitant]
  17. SPIRONOLACTONE [Concomitant]
     Indication: PRODUCT USED FOR UNKNOWN INDICATION
  18. PANTOPRAZOLE SODIUM [Concomitant]
     Indication: PRODUCT USED FOR UNKNOWN INDICATION
  19. KLOR-CON [Concomitant]
  20. ALLEGRA [Concomitant]
  21. ALPHAGAN [Concomitant]
  22. AZOPT [Concomitant]

REACTIONS (4)
  - GASTROINTESTINAL HAEMORRHAGE [None]
  - CARDIAC FAILURE CONGESTIVE [None]
  - URINARY TRACT INFECTION [None]
  - SEPSIS [None]
